FAERS Safety Report 9802870 (Version 1)
Quarter: 2014Q1

REPORT INFORMATION
  Report Type: Spontaneous
  Country: US (occurrence: US)
  Receive Date: 20140108
  Receipt Date: 20140108
  Transmission Date: 20141002
  Serious: No
  Sender: FDA-Public Use
  Company Number: US-009507513-1312USA010852

PATIENT
  Sex: Male

DRUGS (1)
  1. DULERA [Suspect]
     Dosage: 2 DF, BID (200/5 MICROGRAM, 1 STANDARD DOSE OF 13)
     Route: 055
     Dates: start: 201212

REACTIONS (4)
  - Underdose [Unknown]
  - Device malfunction [Unknown]
  - Device malfunction [Unknown]
  - No adverse event [Unknown]
